FAERS Safety Report 23161962 (Version 1)
Quarter: 2023Q4

REPORT INFORMATION
  Report Type: Report from Study
  Country: GB (occurrence: GB)
  Receive Date: 20231109
  Receipt Date: 20231109
  Transmission Date: 20240110
  Serious: Yes (Other)
  Sender: FDA-Public Use
  Company Number: GB-002147023-NVSC2021GB268954

PATIENT
  Sex: Female

DRUGS (1)
  1. OMNITROPE [Suspect]
     Active Substance: SOMATROPIN
     Indication: Hypopituitarism
     Dosage: 0.2 MG, QD, (ROUTE: AS DIRECTED)
     Route: 058
     Dates: start: 20180810

REACTIONS (6)
  - Loss of consciousness [Unknown]
  - Malaise [Unknown]
  - Pyrexia [Unknown]
  - Confusional state [Unknown]
  - Product storage error [Unknown]
  - Product dose omission issue [Unknown]
